FAERS Safety Report 4949804-7 (Version None)
Quarter: 2006Q1

REPORT INFORMATION
  Report Type: 
  Country: None (occurrence: None)
  Receive Date: 20060315
  Receipt Date: 20060224
  Transmission Date: 20060701
  Serious: Yes (Hospitalization, Other)
  Sender: FDA-Public Use
  Company Number: SE200602001183

PATIENT
  Age: 53 Year
  Sex: Male

DRUGS (5)
  1. ZYPREXA [Suspect]
     Indication: SCHIZOPHRENIA, PARANOID TYPE
     Dosage: 5 MG, 2/D. ORAL; SEE IMAGE
     Route: 048
     Dates: start: 20040809, end: 20041101
  2. ZYPREXA [Suspect]
     Indication: SCHIZOPHRENIA, PARANOID TYPE
     Dosage: 5 MG, 2/D. ORAL; SEE IMAGE
     Route: 048
     Dates: start: 20041101, end: 20051207
  3. ZOLOFT [Concomitant]
  4. NAPROXEN [Concomitant]
  5. RELIV (PARACETAMOL) [Concomitant]

REACTIONS (4)
  - BODY TEMPERATURE INCREASED [None]
  - HEPATIC STEATOSIS [None]
  - KETOACIDOSIS [None]
  - PANCREATITIS HAEMORRHAGIC [None]
